FAERS Safety Report 4987953-8 (Version None)
Quarter: 2006Q2

REPORT INFORMATION
  Report Type: 
  Country: None (occurrence: None)
  Receive Date: 20060424
  Receipt Date: 20060411
  Transmission Date: 20061013
  Serious: Yes (Hospitalization)
  Sender: FDA-Public Use
  Company Number: T200600253

PATIENT
  Age: 56 Year
  Sex: Male

DRUGS (5)
  1. PAMELOR [Suspect]
     Indication: DEPRESSION
     Dosage: ORAL
     Route: 048
     Dates: end: 20060104
  2. CLORAZEPATE DIPOTASSIUM [Suspect]
     Indication: DEPRESSION
     Dosage: ORAL
     Route: 048
     Dates: end: 20060104
  3. GLIMEPIRIDE [Suspect]
     Dosage: ORAL
     Route: 048
     Dates: start: 20030101, end: 20060104
  4. GLUCOPHAGE [Suspect]
     Dosage: ORAL
     Route: 048
     Dates: start: 20030101, end: 20060104
  5. XANTINOL NICOTINATE [Suspect]
     Dosage: ORAL
     Route: 048
     Dates: start: 20030101, end: 20060104

REACTIONS (9)
  - DRUG ABUSER [None]
  - GENERAL PHYSICAL HEALTH DETERIORATION [None]
  - HAEMODIALYSIS [None]
  - HYPOTENSION [None]
  - POLYURIA [None]
  - PROTEINURIA [None]
  - RENAL FAILURE ACUTE [None]
  - SOMNOLENCE [None]
  - TUBULOINTERSTITIAL NEPHRITIS [None]
